FAERS Safety Report 13457076 (Version 2)
Quarter: 2017Q3

REPORT INFORMATION
  Report Type: Spontaneous
  Country: GB (occurrence: GB)
  Receive Date: 20170419
  Receipt Date: 20170712
  Transmission Date: 20171127
  Serious: Yes (Other)
  Sender: FDA-Public Use
  Company Number: GB-PFIZER INC-2017165819

PATIENT
  Age: 40 Year
  Sex: Female

DRUGS (6)
  1. MIFEGYNE [Suspect]
     Active Substance: MIFEPRISTONE
     Indication: ABORTION INDUCED
     Dosage: 200 MG, 1X/DAY
     Route: 048
     Dates: start: 20041214, end: 20041214
  2. MISOPROSTOL. [Suspect]
     Active Substance: MISOPROSTOL
     Indication: ABORTION INDUCED
     Dosage: 500 UG, 1X/DAY
     Route: 048
     Dates: start: 20041216, end: 20041216
  3. AZITHROMYCIN ANHYDROUS. [Suspect]
     Active Substance: AZITHROMYCIN ANHYDROUS
     Dosage: 1 G, UNK
     Route: 048
     Dates: start: 20041216, end: 20041216
  4. FLAGYL [Suspect]
     Active Substance: METRONIDAZOLE\METRONIDAZOLE HYDROCHLORIDE
     Dosage: 1 G, UNK
     Dates: start: 20041216, end: 20041216
  5. DICLOFENAC [Suspect]
     Active Substance: DICLOFENAC
     Dosage: 100 MG, UNK
     Route: 048
     Dates: start: 20041216, end: 20041216
  6. STEMETIL [Suspect]
     Active Substance: PROCHLORPERAZINE MALEATE
     Dosage: 12.5 MG, UNK
     Dates: start: 20041216, end: 20041216

REACTIONS (2)
  - Cerebrovascular accident [Recovering/Resolving]
  - Incorrect dose administered [Unknown]

NARRATIVE: CASE EVENT DATE: 20041214
